FAERS Safety Report 9914375 (Version 1)
Quarter: 2014Q1

REPORT INFORMATION
  Report Type: Spontaneous
  Country: US (occurrence: US)
  Receive Date: 20140220
  Receipt Date: 20140220
  Transmission Date: 20141002
  Serious: Yes (Hospitalization)
  Sender: FDA-Public Use
  Company Number: US-BMSGILMSD-2011-0042582

PATIENT
  Age: 46 Year
  Sex: Male
  Weight: 48.35 kg

DRUGS (6)
  1. ATRIPLA [Suspect]
     Indication: HIV INFECTION
     Route: 048
     Dates: start: 20110124, end: 20110713
  2. BACTRIM DS [Concomitant]
     Indication: ANTIFUNGAL PROPHYLAXIS
     Route: 048
     Dates: start: 20110121, end: 20110418
  3. ZANTAC [Concomitant]
     Indication: GASTROOESOPHAGEAL REFLUX DISEASE
     Route: 048
     Dates: start: 20110307
  4. CETIRIZINE [Concomitant]
     Indication: HYPERSENSITIVITY
     Route: 048
     Dates: start: 20110620
  5. MULTIVITAMIN [Concomitant]
     Indication: SUPPLEMENTATION THERAPY
     Route: 048
     Dates: start: 20110121
  6. ATARAX [Concomitant]
     Indication: PRURITUS
     Route: 048
     Dates: start: 20110121, end: 20110307

REACTIONS (4)
  - Blood alkaline phosphatase increased [Recovered/Resolved]
  - Transaminases increased [Recovered/Resolved]
  - Vomiting [Recovered/Resolved]
  - Amylase increased [Unknown]
